FAERS Safety Report 5052361-0 (Version None)
Quarter: 2006Q3

REPORT INFORMATION
  Report Type: 
  Country: None (occurrence: None)
  Receive Date: 20060717
  Receipt Date: 20060704
  Transmission Date: 20061208
  Serious: Yes (Other)
  Sender: FDA-Public Use
  Company Number: 2006AC01239

PATIENT
  Age: 15 Year
  Sex: Female

DRUGS (1)
  1. SEROQUEL [Suspect]
     Indication: ABNORMAL BEHAVIOUR
     Dosage: PATIENT TREATED WITH 300 TO 400 MG PER DAY
     Route: 048

REACTIONS (1)
  - NEUTROPENIA [None]
